FAERS Safety Report 9684663 (Version 3)
Quarter: 2014Q2

REPORT INFORMATION
  Report Type: Spontaneous
  Country: US (occurrence: None)
  Receive Date: 20131108
  Receipt Date: 20140515
  Transmission Date: 20141212
  Serious: Yes (Hospitalization, Other)
  Sender: FDA-Public Use
  Company Number: ADR-2013-02030

PATIENT
  Sex: Male

DRUGS (2)
  1. LIORESAL [Suspect]
     Indication: MUSCLE SPASTICITY
     Dosage: 1645.5MCG/DAY
  2. BOTOX [Suspect]

REACTIONS (5)
  - Cyanosis [None]
  - Diaphragmatic paralysis [None]
  - Toxicity to various agents [None]
  - Dyspnoea [None]
  - Sleep apnoea syndrome [None]
